FAERS Safety Report 19811799 (Version 3)
Quarter: 2021Q4

REPORT INFORMATION
  Report Type: Spontaneous
  Country: US (occurrence: US)
  Receive Date: 20210909
  Receipt Date: 20211219
  Transmission Date: 20220303
  Serious: Yes (Life-Threatening)
  Sender: FDA-Public Use
  Company Number: US-JNJFOC-20210858837

PATIENT
  Age: 24 Year
  Sex: Male
  Weight: 167 kg

DRUGS (7)
  1. STELARA [Suspect]
     Active Substance: USTEKINUMAB
     Indication: Colitis ulcerative
     Dosage: USTEKINUMAB (STELARA) 390 MG INTRAVENOUS IN 0.9% SODIUM CHLORIDE 250 ML AS INFUSION. USTEKINUMAB (ST
     Route: 042
     Dates: start: 20210811
  2. BENADRYL [Concomitant]
     Active Substance: DIPHENHYDRAMINE HYDROCHLORIDE
     Indication: Premedication
     Dosage: DIPHENHYDRAMINE (BENADRYL) 50 MG INTRAVENOUS IN 0.9% SODIUM CHLORIDE 100 ML STARTED AT 4:30 PM AS IV
     Route: 042
     Dates: start: 20210811
  3. ACETAMINOPHEN [Concomitant]
     Active Substance: ACETAMINOPHEN
     Indication: Premedication
  4. DELZICOL [Concomitant]
     Active Substance: MESALAMINE
     Indication: Colitis
     Dates: start: 20210309
  5. MESALAMINE [Concomitant]
     Active Substance: MESALAMINE
     Indication: Colitis
     Dates: start: 20210903
  6. TYLENOL [Concomitant]
     Active Substance: ACETAMINOPHEN
     Indication: Premedication
     Route: 048
     Dates: start: 20210811
  7. SODIUM CHLORIDE [Concomitant]
     Active Substance: SODIUM CHLORIDE
     Dosage: 0.9% SODIUM CHLORIDE KVO 250 ML.?0.9% SODIUM CHLORIDE KVO 250 ML ENDED AT 6:10 PM. GIVEN OVER 1 HOUR

REACTIONS (2)
  - Hypersensitivity [Recovered/Resolved]
  - Infusion related reaction [Recovered/Resolved]

NARRATIVE: CASE EVENT DATE: 20210811
